FAERS Safety Report 25253358 (Version 1)
Quarter: 2025Q2

REPORT INFORMATION
  Report Type: Spontaneous
  Country: US (occurrence: US)
  Receive Date: 20250430
  Receipt Date: 20250430
  Transmission Date: 20250716
  Serious: No
  Sender: GLAXOSMITHKLINE
  Company Number: US-GSK-US2025GSK050379

PATIENT
  Age: 45 Year
  Sex: Female

DRUGS (2)
  1. BUPROPION HYDROCHLORIDE [Suspect]
     Active Substance: BUPROPION HYDROCHLORIDE
     Indication: Depression
  2. TRINTELLIX [Concomitant]
     Active Substance: VORTIOXETINE HYDROBROMIDE
     Indication: Product used for unknown indication

REACTIONS (6)
  - Intermenstrual bleeding [Unknown]
  - Headache [Unknown]
  - Nausea [Unknown]
  - Dizziness [Unknown]
  - Tearfulness [Unknown]
  - Crying [Unknown]

NARRATIVE: CASE EVENT DATE: 20250401
